FAERS Safety Report 9096456 (Version 2)
Quarter: 2013Q1

REPORT INFORMATION
  Report Type: Report from Study
  Country: ES (occurrence: ES)
  Receive Date: 20130211
  Receipt Date: 20130306
  Transmission Date: 20140127
  Serious: Yes (Hospitalization)
  Sender: FDA-Public Use
  Company Number: ES-BRISTOL-MYERS SQUIBB COMPANY-17348194

PATIENT
  Age: 87 Year
  Sex: Female

DRUGS (5)
  1. METFORMIN HCL [Suspect]
     Indication: TYPE 2 DIABETES MELLITUS
     Route: 048
     Dates: start: 2010, end: 20110318
  2. CAPTOPRIL [Suspect]
     Indication: CARDIAC FAILURE CONGESTIVE
     Route: 048
     Dates: start: 200906, end: 20110318
  3. BOI K [Suspect]
     Route: 048
     Dates: start: 200904, end: 20110318
  4. SEGURIL [Suspect]
     Indication: CARDIAC FAILURE CONGESTIVE
     Dosage: 1DF: 40 MG
     Route: 048
     Dates: start: 20110310, end: 20110318
  5. BIPRETERAX [Suspect]
     Indication: HYPERTENSION
     Dosage: 1DF: 4MG/1.25 MG
     Route: 048
     Dates: start: 200904, end: 20110318

REACTIONS (2)
  - Renal failure acute [Recovered/Resolved]
  - Hyperkalaemia [Recovered/Resolved]
